FAERS Safety Report 5198306-4 (Version None)
Quarter: 2007Q1

REPORT INFORMATION
  Report Type: 
  Country: None (occurrence: None)
  Receive Date: 20070104
  Receipt Date: 20061221
  Transmission Date: 20070707
  Serious: Yes (Other)
  Sender: FDA-Public Use
  Company Number: GSK748

PATIENT
  Age: 52 Year
  Sex: Female

DRUGS (8)
  1. ACETAMINOPHEN [Suspect]
     Indication: DRUG USE FOR UNKNOWN INDICATION
     Route: 048
  2. SERTRALINE [Suspect]
     Route: 048
  3. COPROXAMOL [Suspect]
     Route: 048
  4. LORMETAZEPAM [Suspect]
     Route: 048
  5. ETHANOL [Suspect]
  6. DICLOFENAC SODIUM [Suspect]
     Route: 048
  7. CEPHRADINE [Suspect]
     Route: 048
  8. DESLORATADINE [Suspect]
     Route: 048

REACTIONS (5)
  - ATRIOVENTRICULAR BLOCK FIRST DEGREE [None]
  - HEART RATE INCREASED [None]
  - INTENTIONAL OVERDOSE [None]
  - SOMNOLENCE [None]
  - TROPONIN INCREASED [None]
